FAERS Safety Report 8413480-1 (Version None)
Quarter: 2012Q2

REPORT INFORMATION
  Report Type: 
  Country: None (occurrence: None)
  Receive Date: 20120605
  Receipt Date: 20120529
  Transmission Date: 20120825
  Serious: Yes (Other)
  Sender: FDA-Public Use
  Company Number: BR-ROCHE-1074616

PATIENT
  Sex: Male
  Weight: 74 kg

DRUGS (1)
  1. NAPROSYN [Suspect]
     Indication: PRODUCT USED FOR UNKNOWN INDICATION
     Route: 048
     Dates: start: 20120511, end: 20120516

REACTIONS (4)
  - VISION BLURRED [None]
  - DIPLOPIA [None]
  - EYE MOVEMENT DISORDER [None]
  - EYE PAIN [None]
